FAERS Safety Report 22748466 (Version 3)
Quarter: 2023Q4

REPORT INFORMATION
  Report Type: Spontaneous
  Country: FR (occurrence: FR)
  Receive Date: 20230725
  Receipt Date: 20231211
  Transmission Date: 20240109
  Serious: Yes (Other)
  Sender: FDA-Public Use
  Company Number: FR-PFIZER INC-PV202300125261

PATIENT
  Age: 30 Year
  Sex: Male
  Weight: 80 kg

DRUGS (4)
  1. OXBRYTA [Suspect]
     Active Substance: VOXELOTOR
     Indication: Haemolytic anaemia
     Dosage: 500 MG, 3X/DAY
     Route: 048
     Dates: start: 20230511, end: 20230720
  2. SIKLOS [Concomitant]
     Active Substance: HYDROXYUREA
     Indication: Sickle cell disease
     Dosage: 2 G, DAILY
     Dates: start: 2020
  3. TADALAFIL [Concomitant]
     Active Substance: TADALAFIL
     Indication: Priapism
     Dosage: 5 MG, DAILY
     Dates: start: 202304
  4. RAMIPRIL [Concomitant]
     Active Substance: RAMIPRIL
     Indication: Hypertension
     Dosage: 1.25 MG, DAILY
     Dates: start: 2020

REACTIONS (14)
  - Hepatic cytolysis [Recovering/Resolving]
  - Condition aggravated [Recovering/Resolving]
  - Sickle cell anaemia with crisis [Unknown]
  - Priapism [Unknown]
  - Haemoglobin decreased [Unknown]
  - Haematocrit decreased [Unknown]
  - Reticulocyte count abnormal [Unknown]
  - Blood bilirubin increased [Unknown]
  - Creatinine renal clearance normal [Unknown]
  - Blood lactate dehydrogenase increased [Unknown]
  - Pain [Not Recovered/Not Resolved]
  - Fatigue [Recovering/Resolving]
  - Dyspnoea [Not Recovered/Not Resolved]
  - Disease progression [Unknown]

NARRATIVE: CASE EVENT DATE: 20230616
